FAERS Safety Report 7432522-3 (Version None)
Quarter: 2011Q2

REPORT INFORMATION
  Report Type: 
  Country: None (occurrence: None)
  Receive Date: 20110422
  Receipt Date: 20110413
  Transmission Date: 20111010
  Serious: Yes (Hospitalization, Other)
  Sender: FDA-Public Use
  Company Number: US-ASTRAZENECA-2011SE22011

PATIENT
  Age: 72 Year

DRUGS (1)
  1. TOPROL-XL [Suspect]
     Route: 048

REACTIONS (5)
  - LARGE INTESTINE PERFORATION [None]
  - LUNG LOBECTOMY [None]
  - GASTROINTESTINAL SURGERY [None]
  - LUNG NEOPLASM MALIGNANT [None]
  - ABSCESS INTESTINAL [None]
